FAERS Safety Report 9364135 (Version 3)
Quarter: 2014Q1

REPORT INFORMATION
  Report Type: Report from Study
  Country: DE (occurrence: DE)
  Receive Date: 20130624
  Receipt Date: 20140114
  Transmission Date: 20141002
  Serious: Yes (Hospitalization)
  Sender: FDA-Public Use
  Company Number: DE-ELI_LILLY_AND_COMPANY-DE200705002694

PATIENT
  Age: 43 Year
  Sex: Female
  Weight: 73 kg

DRUGS (4)
  1. GEMCITABINE HYDROCHLORIDE [Suspect]
     Indication: BREAST CANCER
     Dosage: 1810 MG, CYCLICAL
     Route: 042
     Dates: start: 20070313, end: 20070425
  2. DOCETAXEL [Suspect]
     Indication: BREAST CANCER
     Dosage: 136 MG, CYCLICAL
     Route: 042
     Dates: start: 20070313, end: 20070313
  3. KEVATRIL [Concomitant]
     Indication: VOMITING
     Dosage: 3 MG, ADMINISTERED ON 13-MAR AND ON 23-MAR-2007
     Route: 042
     Dates: start: 20070313, end: 20070323
  4. FORTECORTIN [Concomitant]
     Indication: VOMITING
     Dosage: 8 MG, UNK
     Route: 042
     Dates: start: 20070312, end: 20070514

REACTIONS (1)
  - Bronchitis [Recovered/Resolved]
